FAERS Safety Report 5034924-1 (Version None)
Quarter: 2006Q2

REPORT INFORMATION
  Report Type: 
  Country: None (occurrence: None)
  Receive Date: 20060622
  Receipt Date: 20060609
  Transmission Date: 20061013
  Serious: Yes (Hospitalization)
  Sender: FDA-Public Use
  Company Number: S06-SWE-02400-01

PATIENT
  Age: 31 Year
  Sex: Female

DRUGS (6)
  1. ESCITALOPRAM OXALATE [Suspect]
     Indication: DEPRESSION
     Dosage: 20 MG QD PO
     Route: 048
     Dates: end: 20060316
  2. REMERON [Suspect]
     Indication: DEPRESSION
     Dosage: 15 MG QD PO
     Route: 048
  3. BRICANYL [Concomitant]
  4. RHINOCORT [Concomitant]
  5. FLUTIDE DISKUS (FLUTICASONE PROPIONATE) [Concomitant]
  6. TAVEGYL (CLEMASTINE) [Concomitant]

REACTIONS (3)
  - ABORTION SPONTANEOUS [None]
  - DRUG EXPOSURE DURING PREGNANCY [None]
  - ECTOPIC PREGNANCY [None]
